FAERS Safety Report 9783776 (Version 2)
Quarter: 2014Q1

REPORT INFORMATION
  Report Type: Spontaneous
  Country: US (occurrence: US)
  Receive Date: 20131226
  Receipt Date: 20140206
  Transmission Date: 20141002
  Serious: No
  Sender: FDA-Public Use
  Company Number: US-PFIZER INC-2013366412

PATIENT
  Age: 76 Year
  Sex: 0

DRUGS (16)
  1. XALKORI [Suspect]
     Indication: LUNG NEOPLASM MALIGNANT
     Dosage: 250 MG, 2X/DAY (1 CAPSULE EVERY TWELVE HOURS)
     Route: 048
     Dates: start: 20131211
  2. XALKORI [Suspect]
     Dosage: 250 MG, 2X/DAY (1 CAPSULE EVERY TWELVE HOURS)
     Route: 048
     Dates: start: 20140105
  3. ATENOLOL [Concomitant]
     Dosage: 25 MG, UNK
     Route: 048
  4. DEXAMETHASONE [Concomitant]
     Dosage: 2 ML, 2X/DAY (1MG/ML)
     Route: 048
     Dates: start: 20130920
  5. LOMOTIL [Concomitant]
     Dosage: 0.025MG ATROPINE SULFATE, 2.5MG DIPHENOXYLATE HYDROCHLORIDE, (TAKE 1 TAB AFTER EACH LOOSE STOOL)
     Route: 048
     Dates: start: 20130920
  6. FLECAINIDE ACETATE [Concomitant]
     Dosage: 50 MG, UNK
     Route: 048
  7. HYDROCHLOROTHIAZIDE [Concomitant]
     Dosage: 25 MG, UNK
     Route: 048
  8. LEVOTHYROXINE SODIUM [Concomitant]
     Dosage: 125 UG, UNK
     Route: 048
  9. LUMIGAN [Concomitant]
     Dosage: 0.03% SOLN, UNK
     Dates: start: 20120606
  10. ONDANSETRON HYDROCHLORIDE [Concomitant]
     Dosage: 4 MG, UNK
     Route: 048
     Dates: start: 20120822
  11. POTASSIUM CHLORIDE [Concomitant]
     Dosage: 20MEQ /15ML (10%), (DILUTE 1 TABLESPOONFUL IN LIQUID AND DRINK DAILY)
     Route: 048
     Dates: start: 20130925
  12. PROCHLORPERAZINE MALEATE [Concomitant]
     Indication: NAUSEA
     Dosage: 10 MG, AS NEEDED ( TAKE 1 TABLET EVERY 6 HOURS AS NEEDED)
     Route: 048
     Dates: start: 20131105
  13. TARCEVA [Concomitant]
     Dosage: 150 MG, DAILY (1 TABLET DAILY)
     Route: 048
  14. VITAMIN B-12 [Concomitant]
     Dosage: 500 UG, UNK
     Route: 048
  15. VITAMIN D3 [Concomitant]
     Dosage: 2000 IU, UNK
     Route: 048
  16. WARFARIN SODIUM [Concomitant]
     Dosage: 3 MG, UNK
     Route: 048

REACTIONS (2)
  - Dysphagia [Recovered/Resolved]
  - Intentional drug misuse [Unknown]
